FAERS Safety Report 21095302 (Version 1)
Quarter: 2022Q3

REPORT INFORMATION
  Report Type: Spontaneous
  Country: US (occurrence: None)
  Receive Date: 20220717
  Receipt Date: 20220717
  Transmission Date: 20221027
  Serious: Yes (Disabling)
  Sender: FDA-Public Use
  Company Number: None

PATIENT
  Age: 23 Year
  Sex: Female
  Weight: 45 kg

DRUGS (1)
  1. ESCITALOPRAM OXALATE [Suspect]
     Active Substance: ESCITALOPRAM OXALATE
     Indication: Anxiety
     Dates: start: 20191001, end: 20220702

REACTIONS (11)
  - Dizziness [None]
  - Migraine [None]
  - Amnesia [None]
  - Electric shock sensation [None]
  - Muscle tightness [None]
  - Nausea [None]
  - Loss of personal independence in daily activities [None]
  - Quality of life decreased [None]
  - Vomiting [None]
  - Dehydration [None]
  - Withdrawal syndrome [None]

NARRATIVE: CASE EVENT DATE: 19990630
